FAERS Safety Report 7069799-2 (Version None)
Quarter: 2010Q4

REPORT INFORMATION
  Report Type: 
  Country: None (occurrence: None)
  Receive Date: 20101028
  Receipt Date: 20100520
  Transmission Date: 20110411
  Serious: No
  Sender: FDA-Public Use
  Company Number: US-WYE-H15334410

PATIENT
  Age: 78 Year
  Sex: Female
  Weight: 67.19 kg

DRUGS (2)
  1. ADVIL [Suspect]
     Indication: ARTHRALGIA
     Route: 048
     Dates: start: 20100501, end: 20100518
  2. CALCIUM [Concomitant]

REACTIONS (1)
  - EAR DISCOMFORT [None]
